FAERS Safety Report 4386567-0 (Version None)
Quarter: 2004Q2

REPORT INFORMATION
  Report Type: 
  Country: None (occurrence: None)
  Receive Date: 20040623
  Receipt Date: 20040610
  Transmission Date: 20050107
  Serious: Yes (Hospitalization)
  Sender: FDA-Public Use
  Company Number: 2004038888

PATIENT
  Age: 63 Year
  Sex: Female

DRUGS (1)
  1. LIPITOR [Suspect]
     Indication: HYPERCHOLESTEROLAEMIA
     Dosage: 10 MG (10 MG, 1 IN 1 D), ORAL
     Route: 048
     Dates: start: 20030101, end: 20040518

REACTIONS (11)
  - ABSCESS [None]
  - ALANINE AMINOTRANSFERASE INCREASED [None]
  - ATELECTASIS [None]
  - BLOOD ALKALINE PHOSPHATASE INCREASED [None]
  - DYSPNOEA [None]
  - FLUID RETENTION [None]
  - GAMMA-GLUTAMYLTRANSFERASE INCREASED [None]
  - HYPOVENTILATION [None]
  - PANCREATITIS ACUTE [None]
  - SJOGREN'S SYNDROME [None]
  - SWELLING [None]
